FAERS Safety Report 11014533 (Version 2)
Quarter: 2015Q2

REPORT INFORMATION
  Report Type: Spontaneous
  Country: US (occurrence: US)
  Receive Date: 20150412
  Receipt Date: 20150525
  Transmission Date: 20150821
  Serious: No
  Sender: FDA-Public Use
  Company Number: US-JNJFOC-20141006224

PATIENT
  Age: 70 Year
  Sex: Male
  Weight: 72.58 kg

DRUGS (15)
  1. PROPRANOLOL [Concomitant]
     Active Substance: PROPRANOLOL\PROPRANOLOL HYDROCHLORIDE
     Indication: VARICOSE VEIN
     Route: 048
     Dates: start: 2012
  2. VITAMIN D3 [Concomitant]
     Active Substance: CHOLECALCIFEROL
     Indication: IMMUNE SYSTEM DISORDER
     Route: 048
     Dates: start: 2013
  3. HYDROCHLOROTHIAZIDE. [Concomitant]
     Active Substance: HYDROCHLOROTHIAZIDE
     Route: 048
  4. SOVALDI [Suspect]
     Active Substance: SOFOSBUVIR
     Indication: HEPATITIS C
     Route: 048
     Dates: start: 20140915
  5. ALDACTONE [Concomitant]
     Active Substance: SPIRONOLACTONE
     Dosage: AT BED TIME
     Route: 048
  6. FISH OIL [Concomitant]
     Active Substance: FISH OIL
     Dosage: EVERY MORNING
     Route: 048
  7. OMEPRAZOLE. [Concomitant]
     Active Substance: OMEPRAZOLE
     Indication: GASTRIC ULCER
     Route: 048
     Dates: start: 2009
  8. CENTRUM SILVER [Concomitant]
     Active Substance: VITAMINS
     Indication: NUTRITIONAL SUPPLEMENTATION
     Route: 048
     Dates: start: 2011
  9. LASIX [Concomitant]
     Active Substance: FUROSEMIDE
     Dosage: AT BED TIME
     Route: 048
  10. LUPRON DEPOT [Concomitant]
     Active Substance: LEUPROLIDE ACETATE
     Indication: PROSTATE CANCER
     Route: 030
     Dates: start: 2009
  11. VITAMIN C [Concomitant]
     Active Substance: ASCORBIC ACID
     Indication: IMMUNE SYSTEM DISORDER
     Route: 048
     Dates: start: 2012
  12. GLIMEPIRIDE. [Concomitant]
     Active Substance: GLIMEPIRIDE
     Route: 048
  13. OLYSIO [Suspect]
     Active Substance: SIMEPREVIR
     Indication: HEPATITIS C
     Route: 048
     Dates: start: 20140915
  14. MILK OF MAGNESIA [Concomitant]
     Active Substance: MAGNESIUM HYDROXIDE
     Indication: LIVER DISORDER
     Dosage: 3 SPOONS IN AM AND IN PM
     Route: 048
     Dates: start: 2012
  15. LACTULOSE. [Concomitant]
     Active Substance: LACTULOSE
     Dosage: FOR 30 DAYS
     Route: 048

REACTIONS (2)
  - Product packaging quantity issue [Unknown]
  - Off label use [Not Recovered/Not Resolved]

NARRATIVE: CASE EVENT DATE: 20140915
